FAERS Safety Report 7503235-4 (Version None)
Quarter: 2011Q2

REPORT INFORMATION
  Report Type: 
  Country: None (occurrence: None)
  Receive Date: 20110525
  Receipt Date: 20110518
  Transmission Date: 20111010
  Serious: Yes (Death, Other)
  Sender: FDA-Public Use
  Company Number: JP-JNJFOC-20110510616

PATIENT
  Age: 81 Year
  Sex: Female

DRUGS (2)
  1. ITRACONAZOLE [Suspect]
     Indication: FEBRILE NEUTROPENIA
     Route: 048
     Dates: start: 20081128, end: 20081222
  2. CHEMOTHERAPY [Suspect]
     Indication: PRODUCT USED FOR UNKNOWN INDICATION
     Route: 065

REACTIONS (3)
  - TRICHOSPORON INFECTION [None]
  - MULTI-ORGAN FAILURE [None]
  - RESPIRATORY FAILURE [None]
